FAERS Safety Report 16944599 (Version 2)
Quarter: 2019Q4

REPORT INFORMATION
  Report Type: Report from Study
  Country: IN (occurrence: IN)
  Receive Date: 20191022
  Receipt Date: 20191219
  Transmission Date: 20200122
  Serious: Yes (Other)
  Sender: FDA-Public Use
  Company Number: PHHY2017IN104899

PATIENT
  Age: 55 Year
  Sex: Male

DRUGS (18)
  1. SCAPHO [Suspect]
     Active Substance: SECUKINUMAB
     Dosage: 150 UNK
     Route: 058
     Dates: start: 20191211
  2. SCAPHO [Suspect]
     Active Substance: SECUKINUMAB
     Indication: PSORIASIS
     Dosage: 300 MG, UNK
     Route: 058
     Dates: start: 20170515
  3. SCAPHO [Suspect]
     Active Substance: SECUKINUMAB
     Dosage: 300 MG
     Route: 058
     Dates: start: 20180204
  4. SCAPHO [Suspect]
     Active Substance: SECUKINUMAB
     Dosage: 300 MG, UNK
     Route: 058
     Dates: start: 20170615
  5. SCAPHO [Suspect]
     Active Substance: SECUKINUMAB
     Dosage: 300 MG, UNK (4TH DOSE)
     Route: 058
     Dates: start: 20170709
  6. SCAPHO [Suspect]
     Active Substance: SECUKINUMAB
     Dosage: 300 MG
     Route: 065
     Dates: start: 20180730
  7. ATARAX [Concomitant]
     Active Substance: HYDROXYZINE HYDROCHLORIDE
     Indication: PRODUCT USED FOR UNKNOWN INDICATION
     Dosage: 10 MG, QD AT 9 PM
     Route: 048
  8. SCAPHO [Suspect]
     Active Substance: SECUKINUMAB
     Dosage: 300 MG, UNK
     Route: 058
     Dates: start: 20180712
  9. SCAPHO [Suspect]
     Active Substance: SECUKINUMAB
     Dosage: UNK, QW
     Route: 058
     Dates: start: 20190212
  10. SCAPHO [Suspect]
     Active Substance: SECUKINUMAB
     Dosage: 150 MG, QW
     Route: 058
     Dates: start: 20190222
  11. SCAPHO [Suspect]
     Active Substance: SECUKINUMAB
     Dosage: 150 MG, QMO
     Route: 058
     Dates: start: 20190520
  12. FOLITRAX [Concomitant]
     Active Substance: METHOTREXATE SODIUM
     Indication: PRODUCT USED FOR UNKNOWN INDICATION
     Dosage: 15 MG, QW ON SATURDAY
     Route: 065
  13. SCAPHO [Suspect]
     Active Substance: SECUKINUMAB
     Dosage: 150 MG, Q2W (EVERY TWO WEEKS)
     Route: 058
  14. FOLVITE [Concomitant]
     Active Substance: FOLIC ACID
     Indication: PRODUCT USED FOR UNKNOWN INDICATION
     Dosage: 5 MG, (ONE TAB ON SUNDAY AT 9 AM)
     Route: 048
  15. SCAPHO [Suspect]
     Active Substance: SECUKINUMAB
     Dosage: 150 MG, QW
     Route: 058
     Dates: start: 20190128
  16. SCAPHO [Suspect]
     Active Substance: SECUKINUMAB
     Dosage: 300 MG, QMO
     Route: 058
     Dates: start: 20190716
  17. SCAPHO [Suspect]
     Active Substance: SECUKINUMAB
     Dosage: 300 MG, QMO
     Route: 058
     Dates: start: 20191014
  18. ALASPAN [Concomitant]
     Indication: PRODUCT USED FOR UNKNOWN INDICATION
     Dosage: 10 MG, UNK
     Route: 048

REACTIONS (11)
  - Diabetes mellitus [Unknown]
  - Psoriasis [Unknown]
  - Skin depigmentation [Not Recovered/Not Resolved]
  - Inappropriate schedule of product administration [Unknown]
  - Pruritus [Not Recovered/Not Resolved]
  - Skin exfoliation [Not Recovered/Not Resolved]
  - Skin lesion [Not Recovered/Not Resolved]
  - Dyspnoea [Unknown]
  - Erythema [Unknown]
  - Product prescribing error [Not Recovered/Not Resolved]
  - Drug ineffective [Unknown]

NARRATIVE: CASE EVENT DATE: 20170707
